FAERS Safety Report 4438579-6 (Version None)
Quarter: 2004Q3

REPORT INFORMATION
  Report Type: 
  Country: None (occurrence: None)
  Receive Date: 20040728
  Receipt Date: 20040302
  Transmission Date: 20050211
  Serious: No
  Sender: FDA-Public Use
  Company Number: USA040360741

PATIENT
  Age: 25 Year
  Sex: Female
  Weight: 64 kg

DRUGS (4)
  1. STRATTERA [Suspect]
     Indication: ATTENTION DEFICIT/HYPERACTIVITY DISORDER
     Dosage: 18 MG IN THE MORNING
     Dates: start: 20040301
  2. PROZAC [Suspect]
     Indication: DEPRESSION
  3. WELLBUTRIN [Concomitant]
  4. ABILIFY (ARIPIRAZOLE) [Concomitant]

REACTIONS (4)
  - DRUG INEFFECTIVE [None]
  - FEELING ABNORMAL [None]
  - FEELING OF RELAXATION [None]
  - NAUSEA [None]
